FAERS Safety Report 13117020 (Version 3)
Quarter: 2017Q1

REPORT INFORMATION
  Report Type: Report from Study
  Country: CA (occurrence: CA)
  Receive Date: 20170116
  Receipt Date: 20170314
  Transmission Date: 20170428
  Serious: Yes (Other)
  Sender: FDA-Public Use
  Company Number: PHHY2017CA003321

PATIENT
  Sex: Female

DRUGS (3)
  1. VENTOLIN [Concomitant]
     Active Substance: ALBUTEROL SULFATE
     Indication: PRODUCT USED FOR UNKNOWN INDICATION
     Route: 065
  2. FLOVENT [Concomitant]
     Active Substance: FLUTICASONE PROPIONATE
     Indication: PRODUCT USED FOR UNKNOWN INDICATION
     Route: 065
  3. AFINITOR [Suspect]
     Active Substance: EVEROLIMUS
     Indication: BREAST CANCER
     Dosage: 10 MG, QD
     Route: 048
     Dates: start: 20170102

REACTIONS (25)
  - Breast cancer [Unknown]
  - Arthralgia [Unknown]
  - Abdominal distension [Unknown]
  - Heart rate decreased [Unknown]
  - Back pain [Unknown]
  - Hirsutism [Unknown]
  - Lacrimation increased [Unknown]
  - Fatigue [Unknown]
  - Dysgeusia [Unknown]
  - Hypertension [Unknown]
  - Pain in extremity [Unknown]
  - Lung disorder [Unknown]
  - Pruritus [Unknown]
  - Gingival disorder [Unknown]
  - Chest discomfort [Unknown]
  - Dyspnoea [Unknown]
  - Pulmonary congestion [Unknown]
  - Malignant neoplasm progression [Unknown]
  - Acne [Unknown]
  - Heart rate irregular [Unknown]
  - Cough [Recovered/Resolved]
  - Peripheral swelling [Unknown]
  - Lymphadenopathy [Unknown]
  - Myalgia [Unknown]
  - Dizziness [Unknown]
